FAERS Safety Report 24968364 (Version 1)
Quarter: 2025Q1

REPORT INFORMATION
  Report Type: Spontaneous
  Country: ZA (occurrence: ZA)
  Receive Date: 20250214
  Receipt Date: 20250214
  Transmission Date: 20250409
  Serious: Yes (Hospitalization, Other)
  Sender: AUROBINDO
  Company Number: ZA-MLMSERVICE-20250124-PI374038-00090-1

PATIENT
  Age: 8 Year
  Sex: Female

DRUGS (1)
  1. CEFUROXIME [Suspect]
     Active Substance: CEFUROXIME
     Indication: Bronchitis viral
     Route: 048

REACTIONS (2)
  - Clostridium difficile infection [Recovered/Resolved]
  - Product prescribing error [Recovered/Resolved]
